FAERS Safety Report 10098580 (Version 2)
Quarter: 2015Q1

REPORT INFORMATION
  Report Type: Spontaneous
  Country: US (occurrence: US)
  Receive Date: 20140423
  Receipt Date: 20150327
  Transmission Date: 20150720
  Serious: Yes (Other)
  Sender: FDA-Public Use
  Company Number: US-MALLINCKRODT-T201401906

PATIENT
  Age: 63 Year
  Sex: Female

DRUGS (2)
  1. TOFRANIL [Suspect]
     Active Substance: IMIPRAMINE HYDROCHLORIDE
     Indication: PRODUCT USED FOR UNKNOWN INDICATION
     Dosage: 10 MG, (2 DOSES)
     Route: 065
  2. PILOCARPINE EYE DROPS [Concomitant]
     Indication: ANGLE CLOSURE GLAUCOMA
     Dosage: UNK, BILATERALLY

REACTIONS (2)
  - Intentional product misuse [Unknown]
  - Angle closure glaucoma [Recovered/Resolved]
